FAERS Safety Report 18411910 (Version 1)
Quarter: 2020Q4

REPORT INFORMATION
  Report Type: Spontaneous
  Country: GB (occurrence: GB)
  Receive Date: 20201021
  Receipt Date: 20201021
  Transmission Date: 20210114
  Serious: Yes (Hospitalization)
  Sender: FDA-Public Use
  Company Number: GB-PERRIGO-20GB014710

PATIENT

DRUGS (2)
  1. CHLORPHENAMINE [Concomitant]
     Active Substance: CHLORPHENIRAMINE MALEATE
  2. PERMETHRIN. [Suspect]
     Active Substance: PERMETHRIN
     Indication: PRODUCT USED FOR UNKNOWN INDICATION
     Dosage: TWO APPLICATIONS
     Route: 061
     Dates: start: 20200601, end: 20200601

REACTIONS (4)
  - Paraesthesia [Recovered/Resolved]
  - Multiple allergies [Unknown]
  - Rash macular [Unknown]
  - Blood pressure increased [Unknown]
